FAERS Safety Report 15419549 (Version 2)
Quarter: 2018Q4

REPORT INFORMATION
  Report Type: Spontaneous
  Country: US (occurrence: US)
  Receive Date: 20180924
  Receipt Date: 20181002
  Transmission Date: 20190204
  Serious: No
  Sender: FDA-Public Use
  Company Number: US-B.I. PHARMACEUTICALS,INC./RIDGEFIELD-2018-BI-046826

PATIENT
  Sex: Male

DRUGS (1)
  1. COMBIVENT [Suspect]
     Active Substance: ALBUTEROL SULFATE\IPRATROPIUM BROMIDE
     Indication: PRODUCT USED FOR UNKNOWN INDICATION
     Dosage: 8 SPRAYS A DAY STRENGTH: 20 MCG / 100 MCG INHALATION SPRAY  PRODUCT: DOSE NOT CHANGED
     Route: 055

REACTIONS (2)
  - Extra dose administered [Unknown]
  - Product quality issue [Unknown]
